FAERS Safety Report 4795410-7 (Version None)
Quarter: 2005Q4

REPORT INFORMATION
  Report Type: 
  Country: None (occurrence: None)
  Receive Date: 20051007
  Receipt Date: 20050927
  Transmission Date: 20060501
  Serious: Yes (Hospitalization)
  Sender: FDA-Public Use
  Company Number: B0395289A

PATIENT
  Age: 18 Year
  Sex: Female

DRUGS (2)
  1. CHLORPROMAZINE HCL [Suspect]
     Indication: BIPOLAR DISORDER
     Dosage: 100 MG / TWICE PER DAY
  2. CARBAMAZEPINE [Suspect]
     Indication: BIPOLAR DISORDER
     Dosage: 100 MG THREE TIMES DAY

REACTIONS (9)
  - COMA [None]
  - CULTURE WOUND POSITIVE [None]
  - GLYCOSURIA [None]
  - HYPERGLYCAEMIA [None]
  - NEUROLEPTIC MALIGNANT SYNDROME [None]
  - SALIVARY HYPERSECRETION [None]
  - STAPHYLOCOCCAL INFECTION [None]
  - TOXIC EPIDERMAL NECROLYSIS [None]
  - URINARY INCONTINENCE [None]
